FAERS Safety Report 5276401-9 (Version None)
Quarter: 2007Q1

REPORT INFORMATION
  Report Type: 
  Country: None (occurrence: None)
  Receive Date: 20061213
  Receipt Date: 20040112
  Transmission Date: 20070707
  Serious: Yes (Death)
  Sender: FDA-Public Use
  Company Number: 2004UW00544

PATIENT
  Age: 92 Year
  Sex: Female

DRUGS (13)
  1. SEROQUEL [Suspect]
     Indication: DEMENTIA
     Dates: start: 20020301
  2. SEROQUEL [Suspect]
     Indication: DEMENTIA
     Dosage: 50 MG TID PO
     Route: 048
     Dates: start: 20030514, end: 20040105
  3. THYROXINAL [Concomitant]
  4. MORPHINE [Concomitant]
  5. ROCEPHIN [Concomitant]
  6. CELEXA [Concomitant]
  7. ASPIRIN [Concomitant]
  8. LEVOTHROID [Concomitant]
  9. ATIVAN [Concomitant]
  10. NORVASC [Concomitant]
  11. OSCAL [Concomitant]
  12. TYLENOL [Concomitant]
  13. ARICEPT [Concomitant]

REACTIONS (1)
  - NEUROLEPTIC MALIGNANT SYNDROME [None]
